FAERS Safety Report 15808516 (Version 1)
Quarter: 2019Q1

REPORT INFORMATION
  Report Type: Report from Study
  Country: IT (occurrence: IT)
  Receive Date: 20190110
  Receipt Date: 20190110
  Transmission Date: 20190417
  Serious: Yes (Hospitalization)
  Sender: FDA-Public Use
  Company Number: IT-PFIZER INC-2019011007

PATIENT
  Age: 65 Year
  Sex: Female

DRUGS (3)
  1. ZARELIS [Suspect]
     Active Substance: VENLAFAXINE HYDROCHLORIDE
     Dosage: 2250 MG (10 DF), TOTAL
     Route: 048
     Dates: start: 20181105, end: 20181105
  2. XANAX [Suspect]
     Active Substance: ALPRAZOLAM
     Dosage: 2 DF, TOTAL
     Route: 048
     Dates: start: 20181105, end: 20181105
  3. SEREUPIN [Suspect]
     Active Substance: PAROXETINE HYDROCHLORIDE
     Dosage: 200 MG (10 DF), TOTAL
     Route: 048
     Dates: start: 20181105, end: 20181105

REACTIONS (3)
  - Hypokinesia [Recovering/Resolving]
  - Hypertransaminasaemia [Recovering/Resolving]
  - Bradyphrenia [Recovering/Resolving]

NARRATIVE: CASE EVENT DATE: 20181105
